FAERS Safety Report 25074320 (Version 2)
Quarter: 2025Q1

REPORT INFORMATION
  Report Type: Spontaneous
  Country: CA (occurrence: CA)
  Receive Date: 20250313
  Receipt Date: 20250331
  Transmission Date: 20250408
  Serious: Yes (Other)
  Sender: PFIZER
  Company Number: CA-PFIZER INC-202500050871

PATIENT
  Age: 57 Year
  Sex: Female

DRUGS (10)
  1. PREVNAR 20 [Suspect]
     Active Substance: PNEUMOCOCCAL 20-VALENT CONJUGATE VACCINE
     Indication: Immunisation
     Dates: start: 20250303, end: 20250303
  2. ACETAZOLAMIDE [Concomitant]
     Active Substance: ACETAZOLAMIDE
  3. AZARGA [Concomitant]
     Active Substance: BRINZOLAMIDE\TIMOLOL MALEATE
  4. AZOPT [Concomitant]
     Active Substance: BRINZOLAMIDE
  5. CYCLOPENTOLATE [Concomitant]
     Active Substance: CYCLOPENTOLATE
  6. FOLIC ACID [Concomitant]
     Active Substance: FOLIC ACID
  7. MAXIDEX [Concomitant]
     Active Substance: DEXAMETHASONE
  8. NEVANAC [Concomitant]
     Active Substance: NEPAFENAC
  9. CHOLECALCIFEROL [Concomitant]
     Active Substance: CHOLECALCIFEROL
  10. VYZULTA [Concomitant]
     Active Substance: LATANOPROSTENE BUNOD

REACTIONS (1)
  - Ocular discomfort [Unknown]
